FAERS Safety Report 9561292 (Version 2)
Quarter: 2013Q3

REPORT INFORMATION
  Report Type: Spontaneous
  Country: US (occurrence: US)
  Receive Date: 20130927
  Receipt Date: 20130927
  Transmission Date: 20140515
  Serious: No
  Sender: FDA-Public Use
  Company Number: US-BIOGENIDEC-2013BI057885

PATIENT
  Sex: Female

DRUGS (6)
  1. TECFIDERA [Suspect]
     Indication: MULTIPLE SCLEROSIS
     Dates: start: 20130625
  2. CYMBALTA [Concomitant]
  3. AMBIEN [Concomitant]
  4. LISINOPRIL [Concomitant]
  5. VITAMIN D [Concomitant]
  6. VITAMIN B-12 [Concomitant]

REACTIONS (3)
  - Hot flush [Not Recovered/Not Resolved]
  - Hyperhidrosis [Unknown]
  - Flatulence [Unknown]
